FAERS Safety Report 23365331 (Version 1)
Quarter: 2024Q1

REPORT INFORMATION
  Report Type: Spontaneous
  Country: GB (occurrence: GB)
  Receive Date: 20240104
  Receipt Date: 20240104
  Transmission Date: 20240409
  Serious: Yes (Hospitalization, Other)
  Sender: FDA-Public Use
  Company Number: None

PATIENT
  Age: 36 Year
  Sex: Male
  Weight: 69 kg

DRUGS (1)
  1. CIPROFLOXACIN [Suspect]
     Active Substance: CIPROFLOXACIN
     Indication: Product used for unknown indication
     Dosage: UNKNOWN
     Route: 065

REACTIONS (8)
  - Panic attack [Recovering/Resolving]
  - Gastrooesophageal reflux disease [Recovering/Resolving]
  - Muscular weakness [Recovering/Resolving]
  - Temperature intolerance [Recovering/Resolving]
  - Neuropathy peripheral [Recovering/Resolving]
  - Pruritus [Recovering/Resolving]
  - Weight decreased [Recovering/Resolving]
  - Muscle spasms [Recovering/Resolving]
